FAERS Safety Report 5054711-8 (Version None)
Quarter: 2006Q3

REPORT INFORMATION
  Report Type: 
  Country: None (occurrence: None)
  Receive Date: 20060719
  Receipt Date: 20060712
  Transmission Date: 20061208
  Serious: Yes (Hospitalization)
  Sender: FDA-Public Use
  Company Number: US-BRISTOL-MYERS SQUIBB COMPANY-13440292

PATIENT
  Sex: Female

DRUGS (1)
  1. TEQUIN [Suspect]
     Indication: INFECTION
     Dates: start: 20040201

REACTIONS (1)
  - HYPOGLYCAEMIA [None]
